FAERS Safety Report 8564096-8 (Version None)
Quarter: 2012Q3

REPORT INFORMATION
  Report Type: 
  Country: None (occurrence: None)
  Receive Date: 20120803
  Receipt Date: 20120724
  Transmission Date: 20120928
  Serious: Yes (Other)
  Sender: FDA-Public Use
  Company Number: BR-GENZYME-POMP-1001663

PATIENT
  Sex: Male
  Weight: 20 kg

DRUGS (1)
  1. MYOZYME [Suspect]
     Indication: GLYCOGEN STORAGE DISEASE TYPE II
     Dosage: 20 MG/KG, Q2W
     Route: 042
     Dates: start: 20070914

REACTIONS (4)
  - CARDIAC FAILURE [None]
  - CONVULSION [None]
  - MOTOR DYSFUNCTION [None]
  - MUSCULAR WEAKNESS [None]
